FAERS Safety Report 9390001 (Version 2)
Quarter: 2013Q3

REPORT INFORMATION
  Report Type: Spontaneous
  Country: US (occurrence: US)
  Receive Date: 20130708
  Receipt Date: 20130807
  Transmission Date: 20140515
  Serious: No
  Sender: FDA-Public Use
  Company Number: US-AMGEN-USASP2013043183

PATIENT
  Age: 48 Year
  Sex: Female

DRUGS (1)
  1. ENBREL [Suspect]
     Indication: PSORIASIS
     Dosage: 50 MG, 2 TIMES/WK
     Route: 065
     Dates: start: 20130410

REACTIONS (4)
  - Abdominal pain [Not Recovered/Not Resolved]
  - Injection site injury [Recovered/Resolved]
  - Pelvic pain [Not Recovered/Not Resolved]
  - Sinusitis [Recovered/Resolved]
